FAERS Safety Report 9504125 (Version 1)
Quarter: 2013Q3

REPORT INFORMATION
  Report Type: Spontaneous
  Country: DE (occurrence: DE)
  Receive Date: 20130906
  Receipt Date: 20130906
  Transmission Date: 20140515
  Serious: Yes (Hospitalization, Other)
  Sender: FDA-Public Use
  Company Number: DE-ELI_LILLY_AND_COMPANY-DE201308008588

PATIENT
  Sex: Female

DRUGS (6)
  1. CYMBALTA [Suspect]
     Indication: DEPRESSION
     Dosage: 90 MG, UNKNOWN
     Route: 048
  2. CYMBALTA [Suspect]
     Dosage: 120 MG, UNKNOWN
     Route: 048
  3. CYMBALTA [Suspect]
     Dosage: 90 MG, UNKNOWN
     Route: 048
     Dates: start: 20130826
  4. ERGENYL CHRONO [Concomitant]
     Dosage: UNK, UNKNOWN
     Route: 065
  5. SEROQUEL [Concomitant]
     Dosage: 300 MG, UNKNOWN
     Route: 065
  6. VALDOXAN [Concomitant]
     Dosage: UNK, UNKNOWN
     Route: 065

REACTIONS (4)
  - Bipolar disorder [Unknown]
  - Fatigue [Not Recovered/Not Resolved]
  - Mania [Unknown]
  - Hypersomnia [Unknown]
